FAERS Safety Report 21273352 (Version 2)
Quarter: 2022Q3

REPORT INFORMATION
  Report Type: Spontaneous
  Country: US (occurrence: None)
  Receive Date: 20220831
  Receipt Date: 20220906
  Transmission Date: 20221026
  Serious: No
  Sender: FDA-Public Use
  Company Number: 2022A283093

PATIENT
  Age: 60 Year
  Sex: Female
  Weight: 95.3 kg

DRUGS (1)
  1. SYMBICORT [Suspect]
     Active Substance: BUDESONIDE\FORMOTEROL FUMARATE DIHYDRATE
     Indication: Asthma
     Dosage: 2 PUFFS TWICE DAILY THAT WAS REDUCED TO 2 PUFFS IN THE MORNING,2 PUFFS AT NIGHT
     Route: 055

REACTIONS (8)
  - Nasal congestion [Unknown]
  - Cough [Unknown]
  - Bronchitis [Unknown]
  - Multiple allergies [Unknown]
  - Intentional device misuse [Unknown]
  - Product dose omission issue [Unknown]
  - Off label use [Unknown]
  - Device delivery system issue [Unknown]

NARRATIVE: CASE EVENT DATE: 20220809
